FAERS Safety Report 9753844 (Version 1)
Quarter: 2013Q4

REPORT INFORMATION
  Report Type: Spontaneous
  Country: US (occurrence: US)
  Receive Date: 20131213
  Receipt Date: 20131213
  Transmission Date: 20140711
  Serious: No
  Sender: FDA-Public Use
  Company Number: US-GILEAD-2010-0027649

PATIENT
  Sex: Female
  Weight: 63.5 kg

DRUGS (8)
  1. LOPRESSOR [Concomitant]
  2. ASPIRIN [Concomitant]
  3. PREDNISONE [Concomitant]
  4. CELLCEPT [Concomitant]
  5. NYSTATIN [Concomitant]
  6. PROTONIX [Concomitant]
  7. LETAIRIS [Suspect]
     Indication: PULMONARY ARTERIAL HYPERTENSION
     Route: 048
     Dates: start: 20081209
  8. CARDIZEM [Concomitant]

REACTIONS (1)
  - Dry throat [Unknown]
